FAERS Safety Report 16476873 (Version 1)
Quarter: 2019Q2

REPORT INFORMATION
  Report Type: Spontaneous
  Country: JP (occurrence: JP)
  Receive Date: 20190626
  Receipt Date: 20190626
  Transmission Date: 20190711
  Serious: Yes (Hospitalization)
  Sender: FDA-Public Use
  Company Number: JP-TEVA-2019-JP-003700J

PATIENT
  Age: 18 Year
  Sex: Male

DRUGS (1)
  1. CLARITHROMYCIN TABLET 200MG ^TAIYO^ [Suspect]
     Active Substance: CLARITHROMYCIN
     Indication: PRODUCT USED FOR UNKNOWN INDICATION
     Route: 065
     Dates: start: 201805

REACTIONS (1)
  - Drug eruption [Unknown]
